FAERS Safety Report 8249660-8 (Version None)
Quarter: 2012Q1

REPORT INFORMATION
  Report Type: 
  Country: None (occurrence: None)
  Receive Date: 20120328
  Receipt Date: 20120316
  Transmission Date: 20120608
  Serious: Yes (Other)
  Sender: FDA-Public Use
  Company Number: IMP_05805_2012

PATIENT
  Sex: Female

DRUGS (1)
  1. PYRIDOSTIGMINE BROMIDE [Suspect]
     Indication: PRODUCT USED FOR UNKNOWN INDICATION
     Dosage: 60 MG FREGUENCY UNKNOWN
     Dates: start: 20110701

REACTIONS (7)
  - CONFUSIONAL STATE [None]
  - PRODUCT QUALITY ISSUE [None]
  - EYE DISORDER [None]
  - PRODUCT USED FOR UNKNOWN INDICATION [None]
  - DRUG INEFFECTIVE [None]
  - MENTAL IMPAIRMENT [None]
  - MUSCULAR WEAKNESS [None]
